FAERS Safety Report 14343041 (Version 1)
Quarter: 2017Q4

REPORT INFORMATION
  Report Type: Spontaneous
  Country: US (occurrence: US)
  Receive Date: 20171230
  Receipt Date: 20171230
  Transmission Date: 20180321
  Serious: Yes (Other)
  Sender: FDA-Public Use
  Company Number: None

PATIENT
  Age: 62 Year
  Sex: Male
  Weight: 77.4 kg

DRUGS (2)
  1. CLARITIN [Concomitant]
     Active Substance: LORATADINE
  2. CIPROFLOXIN [Suspect]
     Active Substance: CIPROFLOXACIN
     Indication: INFECTION PROPHYLAXIS
     Dosage: ?          QUANTITY:1 TABLET(S);?
     Route: 048
     Dates: start: 20171229, end: 20171230

REACTIONS (1)
  - Tendonitis [None]

NARRATIVE: CASE EVENT DATE: 20171230
